FAERS Safety Report 9710935 (Version 1)
Quarter: 2013Q4

REPORT INFORMATION
  Report Type: Spontaneous
  Country: US (occurrence: US)
  Receive Date: 20131126
  Receipt Date: 20131126
  Transmission Date: 20140711
  Serious: No
  Sender: FDA-Public Use
  Company Number: US-BRISTOL-MYERS SQUIBB COMPANY-19052745

PATIENT
  Age: 66 Year
  Sex: Male
  Weight: 89.79 kg

DRUGS (3)
  1. BYETTA PEN DISPOSABLE [Suspect]
     Indication: TYPE 2 DIABETES MELLITUS
     Dosage: PRESCRIPTION #:  1159567-03068?2-3 YRS AGO
  2. METFORMIN [Suspect]
  3. FISH OIL [Concomitant]

REACTIONS (3)
  - Blood glucose increased [Unknown]
  - Herpes zoster [Recovering/Resolving]
  - Product quality issue [Unknown]
